FAERS Safety Report 8041026-9 (Version None)
Quarter: 2012Q1

REPORT INFORMATION
  Report Type: 
  Country: None (occurrence: None)
  Receive Date: 20120109
  Receipt Date: 20111229
  Transmission Date: 20120608
  Serious: Yes (Hospitalization, Disabling, Other)
  Sender: FDA-Public Use
  Company Number: 2011MA002942

PATIENT
  Age: 78 Year
  Sex: Male
  Weight: 83.0083 kg

DRUGS (42)
  1. METHOCARBAMOL [Concomitant]
  2. HYDROCODONE BITARTRATE [Concomitant]
  3. CARAFATE [Concomitant]
  4. IBUPROFEN [Concomitant]
  5. XANAX [Concomitant]
  6. METOCLOPRAMIDE [Suspect]
     Dates: start: 19850101, end: 20100324
  7. HYDROCHLOROTHIAZIDE [Concomitant]
  8. APAP TAB [Concomitant]
  9. GABAPENTIN [Concomitant]
  10. FLUOCINOLONE ACETONIDE [Concomitant]
  11. GEMFIBROZIL [Concomitant]
  12. PSEUDOEPHEDRINE HCL [Concomitant]
  13. MAGNESIUM HYDROXIDE TAB [Concomitant]
  14. SIMVASTATIN [Concomitant]
  15. NIACIN [Concomitant]
  16. CALCIUM [Concomitant]
  17. DICLOFENAC [Concomitant]
  18. ASPIRIN [Concomitant]
  19. LORATADINE [Concomitant]
  20. PRILOSEC [Concomitant]
  21. PROPRANOLOL [Concomitant]
  22. PIOGLITAZONE [Concomitant]
  23. PRIMIDONE [Concomitant]
  24. VALIUM [Concomitant]
  25. ROUVASTATIN [Concomitant]
  26. OMEPRAZOLE [Concomitant]
  27. ALENDRONATE SODIUM [Concomitant]
  28. EZETIMBE [Concomitant]
  29. NITROGLYCERIN [Concomitant]
  30. METOPROLOL TARTRATE [Concomitant]
  31. VITAMIN D [Concomitant]
  32. TRIAMCINOLONE [Concomitant]
  33. MIRAPEX [Concomitant]
  34. ONDANSETRON HCL [Concomitant]
  35. AMOXICILLIN [Concomitant]
  36. ANTIVERT [Concomitant]
  37. DOPAMINE HCL [Concomitant]
  38. ZANTAC [Concomitant]
  39. LISINOPRIL [Concomitant]
  40. GLIPIZIDE [Concomitant]
  41. BETAMETHASONE [Concomitant]
  42. ATENOLOL [Concomitant]

REACTIONS (80)
  - OESOPHAGITIS [None]
  - BONE PAIN [None]
  - MUSCLE STRAIN [None]
  - SOMATOFORM DISORDER [None]
  - VISION BLURRED [None]
  - EXCESSIVE EYE BLINKING [None]
  - ACQUIRED OESOPHAGEAL WEB [None]
  - GASTRIC MUCOSA ERYTHEMA [None]
  - INSOMNIA [None]
  - ABDOMINAL TENDERNESS [None]
  - BLEPHAROSPASM [None]
  - HYPERKERATOSIS [None]
  - HYPERTENSION [None]
  - PNEUMONIA [None]
  - PERSONALITY CHANGE [None]
  - APPENDICITIS [None]
  - INTENTION TREMOR [None]
  - FATIGUE [None]
  - MUSCULAR WEAKNESS [None]
  - HYPOGLYCAEMIA [None]
  - NAUSEA [None]
  - BLOOD PRESSURE INCREASED [None]
  - SPINAL OSTEOARTHRITIS [None]
  - ANGINA PECTORIS [None]
  - WHEEZING [None]
  - WHITE BLOOD CELL COUNT INCREASED [None]
  - ABDOMINAL DISTENSION [None]
  - EMOTIONAL DISTRESS [None]
  - CATARACT OPERATION [None]
  - ECONOMIC PROBLEM [None]
  - EMOTIONAL DISORDER [None]
  - FEELING JITTERY [None]
  - PANIC ATTACK [None]
  - BENIGN PROSTATIC HYPERPLASIA [None]
  - COLONIC POLYP [None]
  - HYPERCHOLESTEROLAEMIA [None]
  - UNEVALUABLE EVENT [None]
  - TARDIVE DYSKINESIA [None]
  - EXTRAPYRAMIDAL DISORDER [None]
  - PAIN [None]
  - DIZZINESS [None]
  - DYSPHAGIA [None]
  - BURSITIS [None]
  - FALL [None]
  - KERATOACANTHOMA [None]
  - DYSPNOEA EXERTIONAL [None]
  - VERTIGO [None]
  - SEDATION [None]
  - ANGER [None]
  - IRRITABILITY [None]
  - BLOOD CREATININE INCREASED [None]
  - INJURY [None]
  - ANXIETY [None]
  - NECK PAIN [None]
  - PAIN IN EXTREMITY [None]
  - HYPERLIPIDAEMIA [None]
  - TYPE 2 DIABETES MELLITUS [None]
  - CORONARY ARTERY DISEASE [None]
  - RASH [None]
  - DIZZINESS POSTURAL [None]
  - DIVERTICULITIS [None]
  - LIMB ASYMMETRY [None]
  - HYPOAESTHESIA [None]
  - ESSENTIAL TREMOR [None]
  - HIATUS HERNIA [None]
  - DECREASED APPETITE [None]
  - NERVOUS SYSTEM DISORDER [None]
  - PARAESTHESIA [None]
  - LYMPHOCYTIC LEUKAEMIA [None]
  - LABYRINTHITIS [None]
  - MENIERE'S DISEASE [None]
  - SOMNOLENCE [None]
  - TREATMENT NONCOMPLIANCE [None]
  - DEAFNESS [None]
  - ROAD TRAFFIC ACCIDENT [None]
  - ERUCTATION [None]
  - MUSCLE TWITCHING [None]
  - ARRHYTHMIA [None]
  - HYPERSENSITIVITY [None]
  - BACK PAIN [None]
